FAERS Safety Report 10689228 (Version 1)
Quarter: 2015Q1

REPORT INFORMATION
  Report Type: Spontaneous
  Country: US (occurrence: US)
  Receive Date: 20150105
  Receipt Date: 20150105
  Transmission Date: 20150720
  Serious: Yes (Hospitalization, Other)
  Sender: FDA-Public Use
  Company Number: US-AMGEN-USASP2014102066

PATIENT
  Age: 76 Year
  Sex: Male

DRUGS (12)
  1. LISINOPRIL. [Concomitant]
     Active Substance: LISINOPRIL
     Dosage: UNK
  2. SENSIPAR [Suspect]
     Active Substance: CINACALCET HYDROCHLORIDE
     Indication: HYPERPARATHYROIDISM SECONDARY
     Dosage: UNK
     Route: 065
  3. PLAVIX [Concomitant]
     Active Substance: CLOPIDOGREL BISULFATE
     Dosage: UNK
  4. SIMVASTATIN. [Concomitant]
     Active Substance: SIMVASTATIN
     Dosage: UNK
  5. NIACIN. [Concomitant]
     Active Substance: NIACIN
     Dosage: UNK
  6. EPOGEN [Suspect]
     Active Substance: ERYTHROPOIETIN
     Indication: PERITONEAL DIALYSIS
  7. MARINOL                            /00003301/ [Concomitant]
     Dosage: UNK
  8. NEPHROCAPS                         /01801401/ [Concomitant]
     Dosage: UNK
  9. INSULIN [Concomitant]
     Active Substance: INSULIN NOS
     Dosage: UNK
  10. EPOGEN [Suspect]
     Active Substance: ERYTHROPOIETIN
     Indication: CHRONIC KIDNEY DISEASE
     Dosage: 20000 UNIT, WEEKLY OR EVERY OTHER WEEK
     Route: 058
     Dates: start: 201010
  11. LASIX [Concomitant]
     Active Substance: FUROSEMIDE
     Dosage: UNK
  12. TOPROL XL [Concomitant]
     Active Substance: METOPROLOL SUCCINATE
     Dosage: UNK

REACTIONS (9)
  - Fluid overload [Unknown]
  - Dyspnoea [Unknown]
  - Vomiting [Unknown]
  - No therapeutic response [Unknown]
  - Peritonitis [Unknown]
  - Azotaemia [Unknown]
  - Haemoglobin abnormal [Not Recovered/Not Resolved]
  - Chills [Unknown]
  - Nausea [Unknown]
